FAERS Safety Report 21298016 (Version 1)
Quarter: 2022Q3

REPORT INFORMATION
  Report Type: Spontaneous
  Country: US (occurrence: None)
  Receive Date: 20220902
  Receipt Date: 20220902
  Transmission Date: 20221026
  Serious: Yes (Death, Hospitalization)
  Sender: FDA-Public Use
  Company Number: None

PATIENT
  Age: 66 Year
  Sex: Female

DRUGS (1)
  1. POMALYST [Suspect]
     Active Substance: POMALIDOMIDE
     Indication: Plasma cell myeloma
     Dosage: FREQUENCY : DAILY;?
     Route: 048
     Dates: start: 20220812, end: 20220828

REACTIONS (11)
  - Multiple organ dysfunction syndrome [None]
  - Respiratory failure [None]
  - Hyponatraemia [None]
  - Hepatic encephalopathy [None]
  - Disseminated intravascular coagulation [None]
  - Hyperammonaemia [None]
  - Hypervolaemia [None]
  - Mental status changes [None]
  - Chest pain [None]
  - Dyspnoea [None]
  - Palliative care [None]

NARRATIVE: CASE EVENT DATE: 20220828
